FAERS Safety Report 5530637-8 (Version None)
Quarter: 2007Q4

REPORT INFORMATION
  Report Type: 
  Country: None (occurrence: None)
  Receive Date: 20071130
  Receipt Date: 20071119
  Transmission Date: 20080405
  Serious: Yes (Other)
  Sender: FDA-Public Use
  Company Number: B0492489A

PATIENT
  Age: 5 Year
  Sex: Female
  Weight: 23 kg

DRUGS (1)
  1. MALARONE [Suspect]
     Indication: MALARIA PROPHYLAXIS
     Dosage: 2TAB PER DAY
     Route: 048
     Dates: start: 20071005, end: 20071020

REACTIONS (1)
  - ECCHYMOSIS [None]
